FAERS Safety Report 7198656-6 (Version None)
Quarter: 2010Q4

REPORT INFORMATION
  Report Type: 
  Country: None (occurrence: None)
  Receive Date: 20101214
  Receipt Date: 20101129
  Transmission Date: 20110411
  Serious: Yes (Life-Threatening)
  Sender: FDA-Public Use
  Company Number: AUR-APL-2010-03013

PATIENT
  Age: 30 Year
  Sex: Female

DRUGS (3)
  1. METOPROLOL [Suspect]
  2. AMIODARONE [Suspect]
  3. DILTIAZEM [Suspect]

REACTIONS (5)
  - ANURIA [None]
  - CONFUSIONAL STATE [None]
  - EJECTION FRACTION DECREASED [None]
  - HYPOTENSION [None]
  - MULTIPLE DRUG OVERDOSE [None]
